FAERS Safety Report 8492655-X (Version None)
Quarter: 2012Q3

REPORT INFORMATION
  Report Type: 
  Country: None (occurrence: None)
  Receive Date: 20120706
  Receipt Date: 20120629
  Transmission Date: 20120928
  Serious: Yes (Other)
  Sender: FDA-Public Use
  Company Number: FR-B.I. PHARMACEUTICALS,INC./RIDGEFIELD-2012-FF-00856FF

PATIENT
  Sex: Female

DRUGS (1)
  1. PRADAXA [Suspect]
     Dosage: 220 MG
     Route: 048
     Dates: start: 20120127, end: 20120202

REACTIONS (1)
  - DRUG INEFFECTIVE [None]
